FAERS Safety Report 8947629 (Version 3)
Quarter: 2013Q1

REPORT INFORMATION
  Report Type: Spontaneous
  Country: US (occurrence: US)
  Receive Date: 20121204
  Receipt Date: 20130124
  Transmission Date: 20140127
  Serious: No
  Sender: FDA-Public Use
  Company Number: US-009507513-1212USA000405

PATIENT
  Sex: Female

DRUGS (2)
  1. PEGINTRON [Suspect]
     Indication: HEPATITIS C
     Dosage: UNK
     Dates: start: 20121112
  2. RIBAVIRIN [Suspect]
     Indication: HEPATITIS C
     Dosage: UNK
     Route: 048
     Dates: start: 20121112

REACTIONS (14)
  - Heart rate increased [Unknown]
  - Memory impairment [Unknown]
  - Red blood cell count decreased [Unknown]
  - Fatigue [Unknown]
  - Injection site reaction [Unknown]
  - Memory impairment [Unknown]
  - Anaemia [Unknown]
  - Influenza like illness [Unknown]
  - Pyrexia [Unknown]
  - Abdominal pain [Unknown]
  - Headache [Unknown]
  - Dehydration [Unknown]
  - Dry eye [Unknown]
  - Pollakiuria [Unknown]
